FAERS Safety Report 7507595-X (Version None)
Quarter: 2011Q2

REPORT INFORMATION
  Report Type: 
  Country: None (occurrence: None)
  Receive Date: 20110526
  Receipt Date: 20110519
  Transmission Date: 20111010
  Serious: Yes (Other)
  Sender: FDA-Public Use
  Company Number: FR-CEPHALON-2011002502

PATIENT
  Sex: Male

DRUGS (2)
  1. FENTANYL CITRATE [Suspect]
     Indication: CANCER PAIN
     Route: 002
  2. FENTANYL [Concomitant]

REACTIONS (1)
  - INTENTIONAL DRUG MISUSE [None]
